FAERS Safety Report 5827049-6 (Version None)
Quarter: 2008Q3

REPORT INFORMATION
  Report Type: 
  Country: None (occurrence: None)
  Receive Date: 20080730
  Receipt Date: 20080725
  Transmission Date: 20090109
  Serious: Yes (Other)
  Sender: FDA-Public Use
  Company Number: A0739581A

PATIENT
  Age: 54 Year
  Sex: Female

DRUGS (3)
  1. BUPROPION HYDROCHLORIDE [Suspect]
     Dosage: 300MG PER DAY
     Route: 048
     Dates: start: 20080101, end: 20080101
  2. WELLBUTRIN XL [Suspect]
     Route: 048
     Dates: start: 20080619
  3. NO CONCURRENT MEDICATION [Concomitant]

REACTIONS (10)
  - CRYING [None]
  - DYSPNOEA [None]
  - EMOTIONAL DISORDER [None]
  - FEELING ABNORMAL [None]
  - ILL-DEFINED DISORDER [None]
  - IMPAIRED WORK ABILITY [None]
  - MENTAL IMPAIRMENT [None]
  - TENSION [None]
  - VISION BLURRED [None]
  - VISUAL IMPAIRMENT [None]
